FAERS Safety Report 5266622-3 (Version None)
Quarter: 2007Q1

REPORT INFORMATION
  Report Type: 
  Country: None (occurrence: None)
  Receive Date: 20070312
  Receipt Date: 20070228
  Transmission Date: 20070707
  Serious: Yes (Death, Other)
  Sender: FDA-Public Use
  Company Number: 2007JP000805

PATIENT
  Age: 15 Year
  Sex: Female

DRUGS (6)
  1. PROGRAF [Suspect]
     Indication: BONE MARROW TRANSPLANT
  2. METHOTREXATE FORMULATION UNKNOWN [Concomitant]
  3. PREDNISOLONE [Concomitant]
  4. GANCICLOVIR (GANCICLOVIR) FORMULATION [Concomitant]
  5. MYCOPHENOLATE MOFETIL [Concomitant]
  6. FUNGUARD (MICAFUNGIN) INJECTION [Concomitant]

REACTIONS (7)
  - ACUTE GRAFT VERSUS HOST DISEASE [None]
  - BLOOD GLUCOSE INCREASED [None]
  - CHRONIC GRAFT VERSUS HOST DISEASE [None]
  - CONVULSION [None]
  - GLUCOSE URINE PRESENT [None]
  - MUCORMYCOSIS [None]
  - PNEUMONIA CYTOMEGALOVIRAL [None]
